FAERS Safety Report 13012834 (Version 1)
Quarter: 2016Q4

REPORT INFORMATION
  Report Type: Spontaneous
  Country: IT (occurrence: IT)
  Receive Date: 20161209
  Receipt Date: 20161209
  Transmission Date: 20170207
  Serious: Yes (Hospitalization)
  Sender: FDA-Public Use
  Company Number: IT-PFIZER INC-2016569470

PATIENT
  Age: 48 Year
  Sex: Male

DRUGS (7)
  1. GABAPENTIN. [Suspect]
     Active Substance: GABAPENTIN
     Indication: MOOD SWINGS
     Dosage: 12 G, TOTAL
     Route: 048
     Dates: start: 20161128, end: 20161128
  2. DEPAKIN [Suspect]
     Active Substance: VALPROATE SODIUM
     Indication: MOOD SWINGS
     Dosage: 20 G, TOTAL
     Route: 048
     Dates: start: 20161128, end: 20161128
  3. XANAX [Suspect]
     Active Substance: ALPRAZOLAM
     Indication: ANXIETY
     Dosage: 15 MG, TOTAL
     Route: 048
     Dates: start: 20161128, end: 20161128
  4. TARGIN [Suspect]
     Active Substance: NALOXONE HYDROCHLORIDE\OXYCODONE HYDROCHLORIDE
     Indication: PAIN
     Dosage: 70 DF, TOTAL
     Route: 048
     Dates: start: 20161128, end: 20161128
  5. DAPAROX /00830802/ [Suspect]
     Active Substance: PAROXETINE HYDROCHLORIDE
     Indication: DEPRESSION
     Dosage: 840 MG, TOTAL
     Route: 048
     Dates: start: 20161128, end: 20161128
  6. FENTANIL [Suspect]
     Active Substance: FENTANYL
     Indication: PAIN
     Dosage: 300 UG, TOTAL
     Route: 062
     Dates: start: 20161128, end: 20161128
  7. LIORESAL [Concomitant]
     Active Substance: BACLOFEN
     Indication: PARALYSIS
     Dosage: 50 MG, UNK
     Route: 048
     Dates: start: 20150101

REACTIONS (3)
  - Overdose [Recovered/Resolved]
  - Intentional self-injury [Recovered/Resolved]
  - Bradyphrenia [Recovered/Resolved]

NARRATIVE: CASE EVENT DATE: 20161128
